FAERS Safety Report 23581498 (Version 1)
Quarter: 2024Q1

REPORT INFORMATION
  Report Type: Spontaneous
  Country: DK (occurrence: DK)
  Receive Date: 20240229
  Receipt Date: 20240229
  Transmission Date: 20240410
  Serious: Yes (Other)
  Sender: FDA-Public Use
  Company Number: None

PATIENT
  Age: 4 Decade
  Sex: Female

DRUGS (3)
  1. CLOZAPINE [Suspect]
     Active Substance: CLOZAPINE
     Indication: Psychotic disorder
     Dosage: UNK
     Route: 048
     Dates: start: 2000, end: 2006
  2. LYRICA [Suspect]
     Active Substance: PREGABALIN
     Indication: Schizophrenia
     Dosage: UNK
     Route: 048
     Dates: start: 200712, end: 200803
  3. TRILAFON [Suspect]
     Active Substance: PERPHENAZINE
     Indication: Mental disorder
     Dosage: UNK
     Route: 065
     Dates: start: 1987, end: 2000

REACTIONS (11)
  - Akathisia [Not Recovered/Not Resolved]
  - Derealisation [Recovered/Resolved]
  - Learning disability [Not Recovered/Not Resolved]
  - Memory impairment [Not Recovered/Not Resolved]
  - Phlebitis [Unknown]
  - Cognitive disorder [Not Recovered/Not Resolved]
  - Overweight [Recovering/Resolving]
  - Musculoskeletal stiffness [Not Recovered/Not Resolved]
  - Disturbance in attention [Not Recovered/Not Resolved]
  - Tardive dyskinesia [Not Recovered/Not Resolved]
  - Weight increased [Recovering/Resolving]

NARRATIVE: CASE EVENT DATE: 19870101
